FAERS Safety Report 12006589 (Version 3)
Quarter: 2016Q3

REPORT INFORMATION
  Report Type: Spontaneous
  Country: US (occurrence: US)
  Receive Date: 20160204
  Receipt Date: 20160801
  Transmission Date: 20161109
  Serious: Yes (Other)
  Sender: FDA-Public Use
  Company Number: US-BAYER-2016-020858

PATIENT
  Age: 62 Year
  Sex: Female
  Weight: 40.36 kg

DRUGS (4)
  1. CIPRO [Suspect]
     Active Substance: CIPROFLOXACIN HYDROCHLORIDE
     Dosage: 400 MG, ONCE
     Dates: start: 20070108
  2. LEVAQUIN [Suspect]
     Active Substance: LEVOFLOXACIN
     Indication: PRODUCT USED FOR UNKNOWN INDICATION
     Dosage: 500 MG, UNK
     Dates: start: 20150122, end: 20150130
  3. AVELOX [Suspect]
     Active Substance: MOXIFLOXACIN HYDROCHLORIDE
     Dosage: UNK
  4. CIPRO [Suspect]
     Active Substance: CIPROFLOXACIN HYDROCHLORIDE
     Dosage: 40 ML, UNK
     Dates: start: 20070108, end: 20070116

REACTIONS (10)
  - Mental disorder [None]
  - Gait disturbance [None]
  - Nervous system disorder [None]
  - Tremor [None]
  - Neuropathy peripheral [None]
  - Musculoskeletal injury [None]
  - Skin injury [None]
  - Cardiovascular disorder [None]
  - Depression [None]
  - Affect lability [None]
